FAERS Safety Report 9094659 (Version 1)
Quarter: 2013Q1

REPORT INFORMATION
  Report Type: Spontaneous
  Country: US (occurrence: US)
  Receive Date: 20130219
  Receipt Date: 20130219
  Transmission Date: 20140127
  Serious: Yes (Disabling)
  Sender: FDA-Public Use
  Company Number: US-009507513-1301USA004836

PATIENT
  Age: 24 Year
  Sex: Female
  Weight: 58.5 kg

DRUGS (2)
  1. NEXPLANON [Suspect]
     Indication: CONTRACEPTION
     Dosage: DOSE/FREQUENCY: 3 YEARS
     Route: 059
     Dates: start: 20121207
  2. [COMPOSITION UNSPECIFIED] [Concomitant]

REACTIONS (1)
  - Depressed mood [Unknown]
